FAERS Safety Report 15435223 (Version 1)
Quarter: 2018Q4

REPORT INFORMATION
  Report Type: Spontaneous
  Country: FI (occurrence: FI)
  Receive Date: 20180927
  Receipt Date: 20180927
  Transmission Date: 20190204
  Serious: Yes (Hospitalization)
  Sender: FDA-Public Use
  Company Number: FI-PFIZER INC-2016341520

PATIENT
  Age: 41 Year
  Sex: Female

DRUGS (7)
  1. CLINDAMYCIN FRESENIUS KABI [Suspect]
     Active Substance: CLINDAMYCIN PHOSPHATE
     Dosage: 600 MG, UNK
     Dates: start: 20150926, end: 20150929
  2. LYRICA [Concomitant]
     Active Substance: PREGABALIN
     Dosage: UNK
     Dates: start: 20151001, end: 20151002
  3. OXANEST [Concomitant]
     Active Substance: OXYCODONE HYDROCHLORIDE
     Dosage: 6-8 MG AS NEEDED
     Dates: start: 20150926, end: 20150930
  4. DALACIN [Suspect]
     Active Substance: CLINDAMYCIN
     Indication: PROPHYLAXIS
     Dosage: 1800 MG, UNK (3 X 600 MG)
     Route: 042
     Dates: start: 20150929, end: 20150930
  5. OXYNORM [Concomitant]
     Active Substance: OXYCODONE HYDROCHLORIDE
     Dosage: 5 MG, SINGLE DOSE AT NIGHTS
     Dates: start: 20150926, end: 20150930
  6. BURANA [Concomitant]
     Active Substance: IBUPROFEN
     Dosage: UNK
     Dates: start: 20151001, end: 20151002
  7. IBUMETIN [Concomitant]
     Active Substance: IBUPROFEN
     Dosage: 400 MG, AS NEEDED
     Dates: end: 20151002

REACTIONS (20)
  - Dyspepsia [Recovered/Resolved]
  - Malabsorption [Recovered/Resolved]
  - Hangover [Recovered/Resolved]
  - Nausea [Recovered/Resolved]
  - Flatulence [Not Recovered/Not Resolved]
  - Fatigue [Not Recovered/Not Resolved]
  - Muscle atrophy [Unknown]
  - Stress [Unknown]
  - Diarrhoea [Recovered/Resolved]
  - Dizziness [Recovered/Resolved]
  - Chills [Recovered/Resolved]
  - Eating disorder [Unknown]
  - Headache [Recovered/Resolved]
  - Epigastric discomfort [Recovered/Resolved]
  - Arthropathy [Recovered/Resolved]
  - Gastroenteritis [Unknown]
  - Abdominal pain upper [Unknown]
  - Weight decreased [Recovered/Resolved]
  - Gastrointestinal pain [Unknown]
  - Cholelithiasis [Unknown]

NARRATIVE: CASE EVENT DATE: 20151002
